FAERS Safety Report 8804062 (Version 1)
Quarter: 2012Q4

REPORT INFORMATION
  Report Type: 
  Country: US (occurrence: US)
  Receive Date: 20120924
  Receipt Date: 20120924
  Transmission Date: 20130627
  Serious: Yes (Hospitalization, Congenital Anomaly)
  Sender: FDA-Public Use
  Company Number: US-GLAXOSMITHKLINE-A0994688A

PATIENT
  Age: 0 Year
  Sex: Female

DRUGS (1)
  1. PAXIL [Suspect]
     Indication: DEPRESSION
     Route: 064

REACTIONS (5)
  - Asperger^s disorder [Unknown]
  - Autism [Unknown]
  - Arnold-Chiari malformation [Unknown]
  - Pituitary tumour benign [Unknown]
  - Foetal exposure during pregnancy [Unknown]
